FAERS Safety Report 25006239 (Version 2)
Quarter: 2025Q1

REPORT INFORMATION
  Report Type: Spontaneous
  Country: JP (occurrence: JP)
  Receive Date: 20250224
  Receipt Date: 20250304
  Transmission Date: 20250409
  Serious: Yes (Other)
  Sender: NOVARTIS
  Company Number: JP-002147023-NVSJ2025JP002371

PATIENT
  Sex: Male

DRUGS (5)
  1. ENTRESTO [Suspect]
     Active Substance: SACUBITRIL\VALSARTAN
     Indication: Hypertension
     Route: 048
  2. ENTRESTO [Suspect]
     Active Substance: SACUBITRIL\VALSARTAN
     Dosage: 100 MG, QD
     Route: 048
  3. NIFEDIPINE [Concomitant]
     Active Substance: NIFEDIPINE
     Indication: Hypertension
     Dosage: 40 MG, BID
     Route: 048
  4. Kindaly 4e [Concomitant]
     Indication: Haemodialysis
     Route: 065
  5. Hepafilled [Concomitant]
     Indication: Haemodialysis
     Route: 065

REACTIONS (3)
  - Blood pressure increased [Recovered/Resolved]
  - Peritonitis [Recovered/Resolved]
  - Weight increased [Recovered/Resolved]
